FAERS Safety Report 13835437 (Version 1)
Quarter: 2017Q3

REPORT INFORMATION
  Report Type: Spontaneous
  Country: GB (occurrence: GB)
  Receive Date: 20170804
  Receipt Date: 20170804
  Transmission Date: 20171127
  Serious: Yes (Other)
  Sender: FDA-Public Use
  Company Number: GB-ALKEM LABORATORIES LIMITED-GB-ALKEM-2017-00522

PATIENT

DRUGS (3)
  1. RISPERIDONE. [Concomitant]
     Active Substance: RISPERIDONE
     Indication: BORDERLINE PERSONALITY DISORDER
     Dosage: 0.5 MG, UNK
     Route: 065
  2. CEPHALEXIN. [Suspect]
     Active Substance: CEPHALEXIN
     Indication: KIDNEY INFECTION
     Dosage: 500 MG, BID
     Route: 065
     Dates: start: 20170621
  3. PROZAC [Concomitant]
     Active Substance: FLUOXETINE HYDROCHLORIDE
     Indication: BIPOLAR DISORDER
     Dosage: 40 MG, UNK
     Route: 065

REACTIONS (8)
  - Nightmare [Unknown]
  - Abnormal dreams [Unknown]
  - Headache [Unknown]
  - Fatigue [Unknown]
  - Night sweats [Unknown]
  - Dizziness [Unknown]
  - Disturbance in attention [Unknown]
  - Malaise [Unknown]

NARRATIVE: CASE EVENT DATE: 20170621
